FAERS Safety Report 13889645 (Version 1)
Quarter: 2017Q3

REPORT INFORMATION
  Report Type: Spontaneous
  Country: US (occurrence: US)
  Receive Date: 20170822
  Receipt Date: 20170822
  Transmission Date: 20171127
  Serious: No
  Sender: FDA-Public Use
  Company Number: US-ROCHE-1164986

PATIENT
  Age: 48 Year
  Sex: Female

DRUGS (4)
  1. PREDNISONE. [Concomitant]
     Active Substance: PREDNISONE
  2. ACTEMRA [Suspect]
     Active Substance: TOCILIZUMAB
     Indication: RHEUMATOID ARTHRITIS
     Route: 042
  3. CELEBREX [Concomitant]
     Active Substance: CELECOXIB
  4. ARAVA [Concomitant]
     Active Substance: LEFLUNOMIDE

REACTIONS (6)
  - Nausea [Recovered/Resolved]
  - Swollen tongue [Recovered/Resolved]
  - Swelling [Not Recovered/Not Resolved]
  - Cystitis [Not Recovered/Not Resolved]
  - Diarrhoea [Recovered/Resolved]
  - Dysarthria [Recovered/Resolved]
